FAERS Safety Report 8128001-0 (Version None)
Quarter: 2012Q1

REPORT INFORMATION
  Report Type: 
  Country: None (occurrence: None)
  Receive Date: 20120210
  Receipt Date: 20120130
  Transmission Date: 20120608
  Serious: Yes (Hospitalization)
  Sender: FDA-Public Use
  Company Number: FR-ACTELION-A-CH2012-60404

PATIENT
  Sex: Female

DRUGS (7)
  1. TRACLEER [Suspect]
     Dosage: UNK MG, BID
     Route: 048
     Dates: end: 20110930
  2. TRACLEER [Suspect]
     Dosage: 62.5 MG, BID
     Route: 048
     Dates: start: 20111108, end: 20120106
  3. PLAVIX [Concomitant]
  4. ATORVASTATIN [Concomitant]
  5. RASILEZ [Concomitant]
  6. TRACLEER [Suspect]
     Indication: SYSTEMIC SCLEROSIS
     Dosage: 62.5 MG, BID
     Route: 048
     Dates: start: 20110810, end: 20110909
  7. TRACLEER [Suspect]
     Dosage: 125 MG, BID
     Route: 048
     Dates: start: 20111001, end: 20111107

REACTIONS (4)
  - HEPATOMEGALY [None]
  - CYTOLYTIC HEPATITIS [None]
  - ALANINE AMINOTRANSFERASE INCREASED [None]
  - ASPARTATE AMINOTRANSFERASE INCREASED [None]
